FAERS Safety Report 8128997-7 (Version None)
Quarter: 2012Q1

REPORT INFORMATION
  Report Type: 
  Country: None (occurrence: None)
  Receive Date: 20120210
  Receipt Date: 20120206
  Transmission Date: 20120608
  Serious: Yes (Death, Hospitalization, Other)
  Sender: FDA-Public Use
  Company Number: JP-ELI_LILLY_AND_COMPANY-JP201111006474

PATIENT
  Sex: Male
  Weight: 82.5 kg

DRUGS (10)
  1. PANVITAN [Concomitant]
     Dosage: 1 G, QD
     Route: 048
     Dates: start: 20110928, end: 20111117
  2. FRESMIN S [Concomitant]
     Dosage: 1 MG, UNK
     Route: 030
     Dates: start: 20110928
  3. CANDESARTAN CILEXETIL AND HYDROCHLOROTHIAZIDE [Concomitant]
     Dosage: 1 DF, QD
     Route: 048
     Dates: start: 20110803
  4. ZOLPIDEM [Concomitant]
     Dosage: 10 MG, QD
     Route: 048
     Dates: start: 20110426
  5. ALIMTA [Suspect]
     Indication: NON-SMALL CELL LUNG CANCER
     Dosage: 500 MG/M2, UNK
     Route: 042
     Dates: start: 20111019, end: 20111019
  6. DEXTROMETHORPHAN HYDROBROMIDE [Concomitant]
     Dosage: 02 MG, TID
     Route: 048
     Dates: start: 20110706
  7. LOXONIN [Concomitant]
     Dosage: 60 MG, TID
     Route: 048
     Dates: start: 20110608
  8. AMLODIPINE [Concomitant]
     Dosage: 5 MG, QD
     Route: 048
  9. MUCOSTA [Concomitant]
     Dosage: 100 MG, TID
     Route: 048
     Dates: start: 20110803
  10. GOSHAJINKIGAN [Concomitant]
     Dosage: 2.5 G, TID
     Route: 048
     Dates: start: 20110415

REACTIONS (4)
  - MALNUTRITION [None]
  - INTERSTITIAL LUNG DISEASE [None]
  - ANAEMIA [None]
  - RASH [None]
